FAERS Safety Report 7022374-8 (Version None)
Quarter: 2010Q3

REPORT INFORMATION
  Report Type: 
  Country: None (occurrence: None)
  Receive Date: 20100930
  Receipt Date: 20100927
  Transmission Date: 20110219
  Serious: No
  Sender: FDA-Public Use
  Company Number: US-PFIZER INC-2010122981

PATIENT
  Sex: Female
  Weight: 99.8 kg

DRUGS (8)
  1. CHANTIX [Suspect]
     Indication: SMOKING CESSATION THERAPY
     Dosage: 0.5 MG, 1X/DAY
     Route: 048
     Dates: start: 20100922
  2. DITROPAN [Concomitant]
     Dosage: UNK
  3. LAMICTAL [Concomitant]
     Dosage: UNK
  4. TOPAMAX [Concomitant]
     Dosage: UNK
  5. METHADONE [Concomitant]
     Dosage: UNK
  6. NEURONTIN [Concomitant]
     Dosage: UNK
  7. KLONOPIN [Concomitant]
     Dosage: UNK
  8. ESTRACE [Concomitant]
     Dosage: UNK

REACTIONS (2)
  - DIZZINESS [None]
  - NAUSEA [None]
